FAERS Safety Report 14417057 (Version 3)
Quarter: 2018Q1

REPORT INFORMATION
  Report Type: Spontaneous
  Country: US (occurrence: US)
  Receive Date: 20180122
  Receipt Date: 20180308
  Transmission Date: 20180509
  Serious: No
  Sender: FDA-Public Use
  Company Number: US-PFIZER INC-2018026512

PATIENT
  Age: 75 Year
  Sex: Female

DRUGS (19)
  1. DOXYCYCLINE. [Concomitant]
     Active Substance: DOXYCYCLINE
     Dosage: UNK
  2. RESTASIS MUL EMU [Concomitant]
     Dosage: UNK
  3. DYMISTA [Concomitant]
     Active Substance: AZELASTINE HYDROCHLORIDE\FLUTICASONE PROPIONATE
     Dosage: UNK (SUS AZELASTINE HYDROCHLORIDE 137 MCG/ACT; FLUTICASONE PROPIONATE 50 MCG/ACT)
  4. GABAPENTIN. [Concomitant]
     Active Substance: GABAPENTIN
     Dosage: 100 MG, UNK
  5. ZOLPIDEM TARTATE [Concomitant]
     Active Substance: ZOLPIDEM TARTRATE
     Dosage: 10 MG, UNK
  6. ESZOPICLONE. [Concomitant]
     Active Substance: ESZOPICLONE
     Dosage: 3 MG, UNK
  7. VERZENIO [Concomitant]
     Active Substance: ABEMACICLIB
     Dosage: 150 MG, UNK
  8. FLOVENT HFA [Concomitant]
     Active Substance: FLUTICASONE PROPIONATE
     Dosage: UNK (110 MCG/AC)
  9. GAS RELIEF [Concomitant]
     Active Substance: DIMETHICONE
     Dosage: 180 MG, UNK
  10. NITROFURANTOIN. [Concomitant]
     Active Substance: NITROFURANTOIN
     Dosage: 50 MG, UNK
  11. FINACEA [Concomitant]
     Active Substance: AZELAIC ACID
     Dosage: UNK
  12. LEVOTHYROXIN [Concomitant]
     Active Substance: LEVOTHYROXINE
     Dosage: 150 UG, UNK
  13. SINGULAIR [Concomitant]
     Active Substance: MONTELUKAST SODIUM
     Dosage: 10 MG, UNK
  14. IBRANCE [Suspect]
     Active Substance: PALBOCICLIB
     Indication: BREAST CANCER FEMALE
     Dosage: 125 MG, CYCLIC (ONCE DAILY WITH FOOD FOR 21 DAYS, THEN 7 DAYS OFF)
     Route: 048
     Dates: start: 20171230
  15. IBRANCE [Suspect]
     Active Substance: PALBOCICLIB
     Dosage: 75 MG, CYCLIC (ONE CAPSULE DAILY FOR 2 WEEKS ON, THEN 2 WEEKS OFF)
     Route: 048
  16. FASLODEX [Concomitant]
     Active Substance: FULVESTRANT
     Dosage: UNK
  17. MECLIZINE HCL [Concomitant]
     Active Substance: MECLIZINE HYDROCHLORIDE
     Dosage: 25 MG, UNK
  18. DIAZEPAM. [Concomitant]
     Active Substance: DIAZEPAM
     Dosage: UNK
  19. ONDANSETRON [Concomitant]
     Active Substance: ONDANSETRON
     Dosage: UNK (TBD 8 MG)

REACTIONS (10)
  - Cough [Unknown]
  - Depression [Unknown]
  - Decreased appetite [Unknown]
  - Full blood count decreased [Not Recovered/Not Resolved]
  - Oral disorder [Not Recovered/Not Resolved]
  - Fatigue [Unknown]
  - Pain [Unknown]
  - Nausea [Unknown]
  - Aphonia [Unknown]
  - Nasal congestion [Unknown]
